FAERS Safety Report 9143842 (Version 1)
Quarter: 2013Q1

REPORT INFORMATION
  Report Type: Spontaneous
  Country: AU (occurrence: AU)
  Receive Date: 20130306
  Receipt Date: 20130306
  Transmission Date: 20140127
  Serious: Yes (Death, Hospitalization)
  Sender: FDA-Public Use
  Company Number: AU-AMGEN-AUSSP2013013477

PATIENT
  Age: 85 Year
  Sex: Female

DRUGS (2)
  1. PROLIA [Suspect]
     Indication: PRODUCT USED FOR UNKNOWN INDICATION
  2. XELODA [Concomitant]
     Dosage: UNK
     Dates: end: 20121211

REACTIONS (7)
  - Localised infection [Fatal]
  - Pulmonary oedema [Fatal]
  - Pneumonia [Fatal]
  - Pain in extremity [Fatal]
  - Chest pain [Unknown]
  - Neck pain [Unknown]
  - Vasoconstriction [Unknown]
